FAERS Safety Report 20626128 (Version 3)
Quarter: 2022Q3

REPORT INFORMATION
  Report Type: Spontaneous
  Country: JP (occurrence: JP)
  Receive Date: 20220323
  Receipt Date: 20220728
  Transmission Date: 20221027
  Serious: Yes (Other)
  Sender: FDA-Public Use
  Company Number: JP-BRISTOL-MYERS SQUIBB COMPANY-BMS-2022-039845

PATIENT
  Age: 7 Decade
  Sex: Male

DRUGS (3)
  1. ELIQUIS [Suspect]
     Active Substance: APIXABAN
     Indication: Embolism venous
     Dosage: VTE CONFIRMED WHETHER THERE IS A WEIGHT LOSS STANDARD, BUT EXPLAINED THAT VTE DOES NOT HAVE A WEIGHT
     Route: 048
     Dates: start: 20220309, end: 20220310
  2. ELIQUIS [Suspect]
     Active Substance: APIXABAN
     Dosage: THE OTHER DAY, A PATIENT STARTED ADMINISTERING AT 20MG/DAY, BUT THE NEXT DAY (10-MAR-2022) HEMATURIA
     Route: 048
     Dates: start: 20220310
  3. ELIQUIS [Suspect]
     Active Substance: APIXABAN
     Route: 048

REACTIONS (3)
  - Haematuria [Recovering/Resolving]
  - Renal impairment [Recovering/Resolving]
  - Tumour invasion [Unknown]

NARRATIVE: CASE EVENT DATE: 20220310
